FAERS Safety Report 23921454 (Version 3)
Quarter: 2024Q3

REPORT INFORMATION
  Report Type: Report from Study
  Country: CA (occurrence: CA)
  Receive Date: 20240530
  Receipt Date: 20240810
  Transmission Date: 20241016
  Serious: Yes (Death, Hospitalization, Other)
  Sender: HLS THERAPEUTICS
  Company Number: CA-HLS-202401350

PATIENT
  Sex: Female

DRUGS (1)
  1. CLOZARIL [Suspect]
     Active Substance: CLOZAPINE
     Indication: Product used for unknown indication
     Route: 048
     Dates: start: 20221111

REACTIONS (2)
  - Neoplasm malignant [Fatal]
  - Urinary tract infection [Unknown]
